FAERS Safety Report 6598851-0 (Version None)
Quarter: 2010Q1

REPORT INFORMATION
  Report Type: 
  Country: None (occurrence: None)
  Receive Date: 20100217
  Receipt Date: 20100126
  Transmission Date: 20100710
  Serious: Yes (Hospitalization)
  Sender: FDA-Public Use
  Company Number: DSJ-2010-01309

PATIENT
  Age: 65 Year
  Sex: Female

DRUGS (1)
  1. BENICAR HCT [Suspect]
     Indication: HYPERTENSION
     Dosage: 40/12.5MG (1 IN 1 D), PER ORAL
     Route: 048
     Dates: start: 20100111

REACTIONS (2)
  - DRUG INEFFECTIVE [None]
  - HEADACHE [None]
